FAERS Safety Report 6482998-3 (Version None)
Quarter: 2009Q4

REPORT INFORMATION
  Report Type: 
  Country: None (occurrence: None)
  Receive Date: 20091209
  Receipt Date: 20091013
  Transmission Date: 20100525
  Serious: No
  Sender: FDA-Public Use
  Company Number: US-KINGPHARMUSA00001-K200901284

PATIENT
  Age: 52 Year
  Sex: Female

DRUGS (2)
  1. EMBEDA [Suspect]
     Indication: COMPLEX REGIONAL PAIN SYNDROME
     Dosage: 20 MG, QD
     Route: 048
     Dates: start: 20091001, end: 20091001
  2. EMBEDA [Suspect]

REACTIONS (1)
  - NAUSEA [None]
